FAERS Safety Report 6031046-8 (Version None)
Quarter: 2008Q4

REPORT INFORMATION
  Report Type: 
  Country: None (occurrence: None)
  Receive Date: 20081222
  Receipt Date: 20081006
  Transmission Date: 20090506
  Serious: No
  Sender: FDA-Public Use
  Company Number: ALL1-2008-02903

PATIENT
  Age: 10 Year
  Sex: Female
  Weight: 30.4 kg

DRUGS (1)
  1. VYVANSE [Suspect]
     Indication: DISTURBANCE IN ATTENTION
     Dosage: 30 MG, 1X/DAY:QD, ORAL
     Route: 048
     Dates: start: 20081005

REACTIONS (3)
  - DECREASED APPETITE [None]
  - INSOMNIA [None]
  - MUSCLE FATIGUE [None]
